FAERS Safety Report 9447635 (Version 3)
Quarter: 2013Q4

REPORT INFORMATION
  Report Type: Report from Study
  Country: FR (occurrence: FR)
  Receive Date: 20130808
  Receipt Date: 20131217
  Transmission Date: 20140711
  Serious: Yes (Hospitalization)
  Sender: FDA-Public Use
  Company Number: FR-ROCHE-1256098

PATIENT
  Age: 81 Year
  Sex: Female

DRUGS (6)
  1. VISMODEGIB [Suspect]
     Indication: CHRONIC LYMPHOCYTIC LEUKAEMIA
     Dosage: DATE OF LAST DOSE PRIOR TO SAE: 28/JUL/2013?DRUG TEMPORARILY INTERRUPTED
     Route: 048
     Dates: start: 20130423, end: 20130730
  2. VISMODEGIB [Suspect]
     Dosage: RESTARTED
     Route: 048
     Dates: start: 20130814
  3. BACTRIM [Concomitant]
     Indication: PROPHYLAXIS
     Route: 065
     Dates: start: 2012, end: 20130730
  4. LEDERFOLINE [Concomitant]
     Indication: PROPHYLAXIS
     Route: 065
     Dates: start: 2012, end: 20130730
  5. ZELITREX [Concomitant]
     Indication: PROPHYLAXIS
     Route: 065
     Dates: start: 2012, end: 20130730
  6. LYRICA [Concomitant]
     Indication: ANXIETY
     Route: 065
     Dates: start: 2012

REACTIONS (2)
  - Meningitis aseptic [Recovered/Resolved with Sequelae]
  - General physical health deterioration [Recovered/Resolved with Sequelae]
